FAERS Safety Report 4267586-1 (Version None)
Quarter: 2004Q1

REPORT INFORMATION
  Report Type: 
  Country: None (occurrence: None)
  Receive Date: 20040109
  Receipt Date: 20030919
  Transmission Date: 20041129
  Serious: Yes (Disabling)
  Sender: FDA-Public Use
  Company Number: US-GLAXOSMITHKLINE-A0426582A

PATIENT
  Age: 59 Year
  Sex: Female

DRUGS (4)
  1. BUPROPRION HCL [Suspect]
     Indication: DEPRESSION
     Dosage: 75MG PER DAY
     Route: 048
     Dates: start: 20030812, end: 20030829
  2. LEXAPRO [Concomitant]
  3. MAXZIDE [Concomitant]
  4. PREVACID [Concomitant]

REACTIONS (2)
  - BALANCE DISORDER [None]
  - VISUAL ACUITY REDUCED [None]
